FAERS Safety Report 10284989 (Version 3)
Quarter: 2014Q3

REPORT INFORMATION
  Report Type: Spontaneous
  Country: JP (occurrence: JP)
  Receive Date: 20140708
  Receipt Date: 20140806
  Transmission Date: 20150326
  Serious: Yes (Hospitalization)
  Sender: FDA-Public Use
  Company Number: JP-GLAXOSMITHKLINE-B1011006A

PATIENT
  Age: 48 Year
  Sex: Female

DRUGS (3)
  1. MICARDIS [Concomitant]
     Active Substance: TELMISARTAN
     Indication: HYPERTENSION
     Dosage: 80MG PER DAY
     Route: 048
     Dates: start: 20140518, end: 20140608
  2. VOTRIENT [Suspect]
     Active Substance: PAZOPANIB HYDROCHLORIDE
     Indication: MALIGNANT HAEMANGIOPERICYTOMA
     Dosage: 400MG PER DAY
     Route: 048
     Dates: start: 20140513, end: 20140608
  3. LAC-B [Concomitant]
     Active Substance: BIFIDOBACTERIUM SPP.
     Indication: DIARRHOEA
     Dosage: 1G THREE TIMES PER DAY
     Route: 048
     Dates: start: 20140520, end: 20140608

REACTIONS (5)
  - Anal abscess [Recovered/Resolved]
  - Abdominal adhesions [Unknown]
  - Diarrhoea [Unknown]
  - Pyrexia [Unknown]
  - Hypertension [Unknown]

NARRATIVE: CASE EVENT DATE: 201405
